FAERS Safety Report 5110920-0 (Version None)
Quarter: 2006Q3

REPORT INFORMATION
  Report Type: 
  Country: None (occurrence: None)
  Receive Date: 20060919
  Receipt Date: 20060906
  Transmission Date: 20061208
  Serious: Yes (Hospitalization)
  Sender: FDA-Public Use
  Company Number: 2006091261

PATIENT
  Age: 39 Year
  Sex: Female

DRUGS (1)
  1. SALAZOPYRIN (SULFASALAZINE) [Suspect]
     Indication: COLITIS ULCERATIVE
     Dosage: 2 GRAM (4 IN 1 D), ORAL
     Route: 048
     Dates: start: 20060605, end: 20060711

REACTIONS (7)
  - AGNOSIA [None]
  - CEREBRAL INFARCTION [None]
  - DERMATITIS EXFOLIATIVE [None]
  - EOSINOPHIL COUNT DECREASED [None]
  - MENINGITIS ASEPTIC [None]
  - RASH GENERALISED [None]
  - WHITE BLOOD CELL COUNT DECREASED [None]
